FAERS Safety Report 8236995-8 (Version None)
Quarter: 2012Q1

REPORT INFORMATION
  Report Type: 
  Country: None (occurrence: None)
  Receive Date: 20120309
  Receipt Date: 20110621
  Transmission Date: 20120608
  Serious: Yes (Other)
  Sender: FDA-Public Use
  Company Number: PHHY2010US90057

PATIENT
  Age: 53 Year
  Sex: Female

DRUGS (18)
  1. CALCIUM CARBONATE [Concomitant]
  2. TOPIRAMATE [Concomitant]
  3. KEPPRA [Concomitant]
  4. WELLBUTRIN	/00700502/ [Concomitant]
  5. BUPROPION HCL [Concomitant]
  6. XANAX [Concomitant]
  7. ZONISAMIDE [Concomitant]
  8. ACETAMINOPHEN [Concomitant]
  9. SUMATRIPTAN [Concomitant]
  10. AMITIZA [Concomitant]
  11. EXTAVIA [Suspect]
     Indication: MULTIPLE SCLEROSIS
     Dosage: 0.25 MG, QOD, SUBCUTANEOUS
     Route: 058
     Dates: start: 20101120, end: 20110104
  12. HYDR000DONE (HYDROCODONE) [Concomitant]
  13. LEVETIRACETAM [Concomitant]
  14. NEURONTIN [Concomitant]
  15. NEURONTIN [Concomitant]
  16. CLONAZEPAM [Concomitant]
  17. VITAMIN D [Concomitant]
  18. GABAPENTIN [Concomitant]

REACTIONS (8)
  - CONVULSION [None]
  - ASTHENIA [None]
  - INJECTION SITE NODULE [None]
  - HYPOAESTHESIA [None]
  - INJECTION SITE ERYTHEMA [None]
  - VISION BLURRED [None]
  - INJECTION SITE RASH [None]
  - ECCHYMOSIS [None]
